FAERS Safety Report 11906355 (Version 1)
Quarter: 2016Q1

REPORT INFORMATION
  Report Type: Spontaneous
  Country: US (occurrence: None)
  Receive Date: 20160108
  Receipt Date: 20160108
  Transmission Date: 20160526
  Serious: No
  Sender: FDA-Public Use
  Company Number: None

PATIENT
  Age: 63 Year
  Sex: Female

DRUGS (2)
  1. CAPECITABINE. [Suspect]
     Active Substance: CAPECITABINE
     Indication: GASTROINTESTINAL CARCINOMA
     Dosage: 500MG  3AM 2PM  PO
     Route: 048
     Dates: start: 20151013, end: 20160107
  2. TEMOZOLOMIDE. [Suspect]
     Active Substance: TEMOZOLOMIDE
     Indication: GASTROINTESTINAL CARCINOMA
     Route: 048
     Dates: start: 20151013, end: 20160107

REACTIONS (1)
  - Disease progression [None]

NARRATIVE: CASE EVENT DATE: 20160107
